FAERS Safety Report 9698648 (Version 2)
Quarter: 2013Q4

REPORT INFORMATION
  Report Type: Spontaneous
  Country: US (occurrence: US)
  Receive Date: 20131120
  Receipt Date: 20131126
  Transmission Date: 20140711
  Serious: Yes (Death, Other)
  Sender: FDA-Public Use
  Company Number: US-TEVA-445455USA

PATIENT
  Sex: 0

DRUGS (1)
  1. FENTANYL [Suspect]

REACTIONS (2)
  - Drug diversion [Unknown]
  - Overdose [Fatal]
